FAERS Safety Report 23898827 (Version 3)
Quarter: 2024Q3

REPORT INFORMATION
  Report Type: Spontaneous
  Country: CA (occurrence: CA)
  Receive Date: 20240525
  Receipt Date: 20240909
  Transmission Date: 20241016
  Serious: Yes (Death, Other)
  Sender: ROCHE
  Company Number: CA-ROCHE-3568623

PATIENT
  Age: 52 Year
  Sex: Male

DRUGS (4)
  1. BEVACIZUMAB [Suspect]
     Active Substance: BEVACIZUMAB
     Indication: Pancreatic carcinoma metastatic
     Route: 065
  2. TRASTUZUMAB [Suspect]
     Active Substance: TRASTUZUMAB
     Indication: Pancreatic carcinoma metastatic
     Route: 065
  3. ENTRECTINIB [Suspect]
     Active Substance: ENTRECTINIB
     Indication: Product used for unknown indication
     Route: 065
  4. PERTUZUMAB [Suspect]
     Active Substance: PERTUZUMAB
     Indication: Pancreatic carcinoma metastatic
     Route: 065

REACTIONS (8)
  - Off label use [Unknown]
  - Drug-induced liver injury [Fatal]
  - Gene mutation [Fatal]
  - Pancreatic carcinoma metastatic [Fatal]
  - Pancytopenia [Fatal]
  - Pleural effusion [Fatal]
  - Drug ineffective [Unknown]
  - Disease progression [Unknown]
